FAERS Safety Report 5239894-9 (Version None)
Quarter: 2007Q1

REPORT INFORMATION
  Report Type: 
  Country: None (occurrence: None)
  Receive Date: 20070216
  Receipt Date: 20070208
  Transmission Date: 20070707
  Serious: Yes (Death, Hospitalization, Other)
  Sender: FDA-Public Use
  Company Number: BR-PFIZER INC-2007011640

PATIENT
  Sex: Female

DRUGS (3)
  1. SILDENAFIL (PAH) [Suspect]
     Route: 048
  2. REVATIO [Suspect]
     Route: 048
     Dates: start: 20061012, end: 20061028
  3. PURAN T4 [Concomitant]
     Route: 048

REACTIONS (3)
  - COMA [None]
  - DEATH [None]
  - PULMONARY FIBROSIS [None]
